FAERS Safety Report 11204268 (Version 1)
Quarter: 2015Q2

REPORT INFORMATION
  Report Type: Spontaneous
  Country: US (occurrence: US)
  Receive Date: 20150620
  Receipt Date: 20150620
  Transmission Date: 20150821
  Serious: No
  Sender: FDA-Public Use
  Company Number: US-009507513-1506USA006753

PATIENT
  Age: 74 Year
  Sex: Female

DRUGS (3)
  1. TICE BCG [Suspect]
     Active Substance: BACILLUS CALMETTE-GUERIN SUBSTRAIN TICE LIVE ANTIGEN
     Dosage: UNK
     Route: 030
  2. TICE BCG [Suspect]
     Active Substance: BACILLUS CALMETTE-GUERIN SUBSTRAIN TICE LIVE ANTIGEN
     Indication: BLADDER CANCER
     Dosage: UNK
     Route: 030
     Dates: start: 201309
  3. TICE BCG [Suspect]
     Active Substance: BACILLUS CALMETTE-GUERIN SUBSTRAIN TICE LIVE ANTIGEN
     Dosage: UNK
     Route: 030

REACTIONS (8)
  - Dysuria [Not Recovered/Not Resolved]
  - Fatigue [Not Recovered/Not Resolved]
  - Pyrexia [Not Recovered/Not Resolved]
  - Urine abnormality [Not Recovered/Not Resolved]
  - Nausea [Not Recovered/Not Resolved]
  - Ovarian disorder [Not Recovered/Not Resolved]
  - Blood urine [Not Recovered/Not Resolved]
  - Chills [Not Recovered/Not Resolved]
